FAERS Safety Report 18317974 (Version 1)
Quarter: 2020Q3

REPORT INFORMATION
  Report Type: Spontaneous
  Country: FR (occurrence: FR)
  Receive Date: 20200928
  Receipt Date: 20200928
  Transmission Date: 20201103
  Serious: Yes (Hospitalization)
  Sender: FDA-Public Use
  Company Number: FR-TEVA-2020-FR-1831293

PATIENT
  Age: 60 Year
  Sex: Male

DRUGS (6)
  1. BACTRIM [Suspect]
     Active Substance: SULFAMETHOXAZOLE\TRIMETHOPRIM
     Dosage: BACTRIM, UNIT DOSE : 6 DOSAGE FORMS
     Route: 048
     Dates: start: 20200810, end: 20200819
  2. LOVENOX [Suspect]
     Active Substance: ENOXAPARIN SODIUM
     Indication: BED REST
     Dosage: UNIT DOSE:  4000 IU
     Route: 058
     Dates: start: 20200819
  3. ROVAMYCINE 3 MILLIONS U I, COMPRIME PELLICULE [Suspect]
     Active Substance: SPIRAMYCIN
     Indication: PNEUMOCYSTIS JIROVECII PNEUMONIA
     Dosage: UNIT DOSE : 3 DOSAGE FORMS
     Route: 048
     Dates: start: 20200820, end: 20200821
  4. BACTRIM [Suspect]
     Active Substance: SULFAMETHOXAZOLE\TRIMETHOPRIM
     Indication: PNEUMOCYSTIS JIROVECII PNEUMONIA
     Dosage: UNIT DOSE : 12 DOSAGE FORMS
     Route: 042
     Dates: start: 20200819
  5. PANTOPRAZOLE [Suspect]
     Active Substance: PANTOPRAZOLE
     Indication: PROPHYLAXIS AGAINST GASTROINTESTINAL ULCER
     Dosage: UNIT DOSE : 40 MILLIGRAM
     Route: 048
     Dates: start: 20200820, end: 20200823
  6. TAZOCILLINE [Suspect]
     Active Substance: PIPERACILLIN SODIUM\TAZOBACTAM SODIUM
     Indication: PNEUMOCYSTIS JIROVECII PNEUMONIA
     Dosage: UNIT DOSE : 3 DOSAGE FORMS
     Route: 042
     Dates: start: 20200820, end: 20200829

REACTIONS (1)
  - Rash maculo-papular [Not Recovered/Not Resolved]

NARRATIVE: CASE EVENT DATE: 20200827
